FAERS Safety Report 4987429-8 (Version None)
Quarter: 2006Q2

REPORT INFORMATION
  Report Type: 
  Country: None (occurrence: None)
  Receive Date: 20060501
  Receipt Date: 20060301
  Transmission Date: 20061013
  Serious: Yes (Other)
  Sender: FDA-Public Use
  Company Number: 2006UW03659

PATIENT
  Sex: Male

DRUGS (8)
  1. CRESTOR [Suspect]
     Indication: HYPERCHOLESTEROLAEMIA
     Route: 064
     Dates: start: 20020101
  2. CRESTOR [Suspect]
     Route: 064
  3. CRESTOR [Suspect]
     Route: 063
     Dates: end: 20060301
  4. INSULIN [Concomitant]
     Route: 064
  5. ASPIRIN [Concomitant]
     Route: 064
  6. ASPIRIN [Concomitant]
     Route: 063
  7. LABETOL [Concomitant]
     Route: 064
  8. LABETOL [Concomitant]
     Route: 063

REACTIONS (7)
  - DEVELOPMENTAL DELAY [None]
  - DRUG EXPOSURE DURING PREGNANCY [None]
  - DRUG EXPOSURE VIA BREAST MILK [None]
  - GESTATIONAL DIABETES [None]
  - HYPERTENSION [None]
  - PREGNANCY [None]
  - SPEECH DISORDER DEVELOPMENTAL [None]
